APPROVED DRUG PRODUCT: AMOXICILLIN
Active Ingredient: AMOXICILLIN
Strength: 125MG/5ML
Dosage Form/Route: FOR SUSPENSION;ORAL
Application: A062946 | Product #001
Applicant: TEVA PHARMACEUTICALS USA INC
Approved: Nov 1, 1988 | RLD: No | RS: No | Type: DISCN